FAERS Safety Report 15247254 (Version 1)
Quarter: 2018Q3

REPORT INFORMATION
  Report Type: Other
  Country: DE (occurrence: DE)
  Receive Date: 20180807
  Receipt Date: 20180807
  Transmission Date: 20181010
  Serious: No
  Sender: FDA-Public Use
  Company Number: DE-LUPIN PHARMACEUTICALS INC.-2018-00959

PATIENT
  Sex: Female
  Weight: 45 kg

DRUGS (13)
  1. TOPIRAMATE. [Concomitant]
     Active Substance: TOPIRAMATE
     Dosage: 150 MG, BID
     Route: 065
     Dates: start: 20160527, end: 20161002
  2. TOPIRAMATE. [Concomitant]
     Active Substance: TOPIRAMATE
     Indication: EPILEPSY
     Dosage: 150 MG, BID
     Route: 065
     Dates: start: 20160322, end: 20160322
  3. TOPIRAMATE. [Concomitant]
     Active Substance: TOPIRAMATE
     Dosage: 125 MG, BID
     Route: 065
     Dates: start: 20160322, end: 20161002
  4. LAMOTRIGINE. [Concomitant]
     Active Substance: LAMOTRIGINE
     Dosage: 200 MG, QD
     Route: 065
     Dates: end: 20160526
  5. TOPIRAMATE. [Concomitant]
     Active Substance: TOPIRAMATE
     Dosage: 150 MG, BID
     Route: 065
     Dates: end: 20160321
  6. LEVETIRACETAM. [Suspect]
     Active Substance: LEVETIRACETAM
     Indication: EPILEPSY
     Dosage: 700 MG, QD
     Route: 065
     Dates: end: 20160315
  7. PERAMPANEL [Concomitant]
     Active Substance: PERAMPANEL
     Dosage: 4 MG, QD
     Route: 065
     Dates: start: 20160314, end: 20160314
  8. PERAMPANEL [Concomitant]
     Active Substance: PERAMPANEL
     Indication: EPILEPSY
     Dosage: 10 MG, QD
     Route: 065
     Dates: end: 20160313
  9. PERAMPANEL [Concomitant]
     Active Substance: PERAMPANEL
     Dosage: 2 MG, QD
     Route: 065
     Dates: start: 20160315, end: 20160315
  10. TOPIRAMATE. [Concomitant]
     Active Substance: TOPIRAMATE
     Dosage: 50 MG, BID
     Route: 065
     Dates: start: 20161003
  11. LAMOTRIGINE. [Concomitant]
     Active Substance: LAMOTRIGINE
     Dosage: 250 MG, QD
     Route: 065
     Dates: start: 20160527
  12. LEVETIRACETAM. [Suspect]
     Active Substance: LEVETIRACETAM
     Dosage: 1250 MG, QD
     Route: 065
     Dates: end: 20160315
  13. LAMOTRIGINE. [Concomitant]
     Active Substance: LAMOTRIGINE
     Indication: EPILEPSY
     Dosage: 250 MG, QD
     Route: 065

REACTIONS (2)
  - Off label use [Unknown]
  - Drug ineffective [Unknown]
